FAERS Safety Report 22604195 (Version 1)
Quarter: 2023Q2

REPORT INFORMATION
  Report Type: Report from Study
  Country: US (occurrence: US)
  Receive Date: 20230615
  Receipt Date: 20230615
  Transmission Date: 20230721
  Serious: Yes (Other)
  Sender: FDA-Public Use
  Company Number: US-MYLANLABS-2023M1006758

PATIENT
  Sex: Female

DRUGS (1)
  1. LYRICA [Suspect]
     Active Substance: PREGABALIN
     Indication: Hereditary motor and sensory neuropathy
     Dosage: 300 MILLIGRAM, BID (2 TIMES A DAY)
     Route: 048

REACTIONS (5)
  - Neuromyopathy [Unknown]
  - Withdrawal syndrome [Unknown]
  - Foot fracture [Unknown]
  - Off label use [Unknown]
  - No adverse event [Unknown]
